FAERS Safety Report 6092644-9 (Version None)
Quarter: 2009Q1

REPORT INFORMATION
  Report Type: 
  Country: None (occurrence: None)
  Receive Date: 20090225
  Receipt Date: 20090216
  Transmission Date: 20090719
  Serious: Yes (Hospitalization)
  Sender: FDA-Public Use
  Company Number: US-ELI_LILLY_AND_COMPANY-US200902004085

PATIENT
  Sex: Female

DRUGS (5)
  1. CYMBALTA [Suspect]
     Indication: ANXIETY
     Dosage: 30 MG, UNK
  2. STRATTERA [Suspect]
  3. ADVIL LIQUI-GELS [Concomitant]
  4. TYLENOL                                 /SCH/ [Concomitant]
  5. PRILOSEC [Concomitant]

REACTIONS (4)
  - ABDOMINAL PAIN [None]
  - BLOOD CHOLESTEROL INCREASED [None]
  - LIVER INJURY [None]
  - MIGRAINE [None]
